FAERS Safety Report 9515413 (Version 2)
Quarter: 2013Q3

REPORT INFORMATION
  Report Type: Report from Study
  Country: MX (occurrence: MX)
  Receive Date: 20130911
  Receipt Date: 20130911
  Transmission Date: 20140515
  Serious: Yes (Death, Life-Threatening, Hospitalization, Other)
  Sender: FDA-Public Use
  Company Number: PHHO2011MX05709

PATIENT
  Age: 39 Year
  Sex: Female
  Weight: 35.7 kg

DRUGS (3)
  1. PROGRAF [Suspect]
     Indication: RENAL TRANSPLANT
     Dosage: 3 MG, BID
     Route: 048
     Dates: start: 20110323, end: 20110328
  2. MYFORTIC [Concomitant]
     Indication: RENAL TRANSPLANT
     Dosage: 720 MG, BID
     Route: 048
     Dates: start: 20110323, end: 20110328
  3. PREDNISONE [Concomitant]
     Indication: RENAL TRANSPLANT
     Dosage: 140 MG, DAILY
     Route: 048
     Dates: start: 20110328, end: 20110328

REACTIONS (3)
  - Pneumonia pseudomonal [Fatal]
  - Vascular graft thrombosis [Fatal]
  - Concomitant disease progression [Not Recovered/Not Resolved]
